FAERS Safety Report 9204148 (Version 1)
Quarter: 2013Q2

REPORT INFORMATION
  Report Type: Spontaneous
  Country: US (occurrence: US)
  Receive Date: 20130402
  Receipt Date: 20130402
  Transmission Date: 20140414
  Serious: Yes (Death, Other)
  Sender: FDA-Public Use
  Company Number: US-PFIZER INC-2003179316US

PATIENT
  Age: 47 Year
  Sex: Female

DRUGS (3)
  1. IBUPROFEN [Suspect]
     Indication: SUICIDE ATTEMPT
     Dosage: UNK
     Route: 048
  2. QUETIAPINE FUMARATE [Suspect]
     Indication: SUICIDE ATTEMPT
     Route: 048
  3. FLUOXETINE HCL [Suspect]
     Indication: SUICIDE ATTEMPT
     Route: 048

REACTIONS (9)
  - Intentional overdose [Fatal]
  - Completed suicide [Fatal]
  - Cardiac arrest [Fatal]
  - Convulsion [Fatal]
  - Hyperhidrosis [Fatal]
  - Hypotension [Fatal]
  - Coma scale abnormal [Fatal]
  - Tachycardia [Fatal]
  - Loss of consciousness [Fatal]
